FAERS Safety Report 20740302 (Version 1)
Quarter: 2022Q2

REPORT INFORMATION
  Report Type: Report from Study
  Country: US (occurrence: None)
  Receive Date: 20220422
  Receipt Date: 20220422
  Transmission Date: 20220721
  Serious: Yes (Hospitalization)
  Sender: FDA-Public Use
  Company Number: US-Eisai Medical Research-EC-2022-113337

PATIENT
  Age: 64 Year
  Sex: Female
  Weight: 158.3 kg

DRUGS (29)
  1. LENVIMA [Suspect]
     Active Substance: LENVATINIB
     Indication: Endometrial cancer
     Route: 048
     Dates: start: 20220202, end: 2022
  2. ACETAMINOPHEN [Concomitant]
     Active Substance: ACETAMINOPHEN
  3. DEXAMETHASONE [Concomitant]
     Active Substance: DEXAMETHASONE
     Dosage: 0.5MG/5ML
  4. DIPHENHYDRAMINE HYDROCHLORIDE [Concomitant]
     Active Substance: DIPHENHYDRAMINE HYDROCHLORIDE
     Dosage: 50 MG/ML
  5. ERGOCALCIFEROL [Concomitant]
     Active Substance: ERGOCALCIFEROL
  6. EZETIMIBE [Concomitant]
     Active Substance: EZETIMIBE
  7. FAMOTIDINE [Concomitant]
     Active Substance: FAMOTIDINE
     Dosage: 20MG/2ML
  8. FLAXSEED [Concomitant]
     Active Substance: FLAX SEED
  9. FUROSEMIDE [Concomitant]
     Active Substance: FUROSEMIDE
  10. ONDANSETRON [Concomitant]
     Active Substance: ONDANSETRON
  11. ACETAMINOPHEN\OXYCODONE HYDROCHLORIDE [Concomitant]
     Active Substance: ACETAMINOPHEN\OXYCODONE HYDROCHLORIDE
     Dosage: 5-325 MG
  12. PALONOSETRON HYDROCHLORIDE [Concomitant]
     Active Substance: PALONOSETRON HYDROCHLORIDE
  13. UDENYCA [Concomitant]
     Active Substance: PEGFILGRASTIM-CBQV
     Dosage: 6MG/0.6ML
  14. VITAMIN B12 [Concomitant]
     Active Substance: CYANOCOBALAMIN
  15. XARELTO [Concomitant]
     Active Substance: RIVAROXABAN
  16. IRBESARTAN [Concomitant]
     Active Substance: IRBESARTAN
  17. KEYTRUDA [Concomitant]
     Active Substance: PEMBROLIZUMAB
  18. LEXAPRO [Concomitant]
     Active Substance: ESCITALOPRAM OXALATE
  19. LUXIQ [Concomitant]
     Active Substance: BETAMETHASONE VALERATE
  20. METANX [Concomitant]
     Active Substance: LEVOMEFOLATE CALCIUM\METHYLCOBALAMIN\PYRIDOXAL PHOSPHATE ANHYDROUS
     Dosage: 3-90.314-2-35 MG
  21. METFORMIN HYDROCHLORIDE [Concomitant]
     Active Substance: METFORMIN HYDROCHLORIDE
  22. METOPROLOL TARTRATE [Concomitant]
     Active Substance: METOPROLOL TARTRATE
  23. PREGABALIN [Concomitant]
     Active Substance: PREGABALIN
  24. PROCHLORPERAZINE MALEATE [Concomitant]
     Active Substance: PROCHLORPERAZINE MALEATE
  25. ROBAXIN [Concomitant]
     Active Substance: METHOCARBAMOL
  26. SYSTANE COMPLETE OPTHALMIC SOLUTION [Concomitant]
  27. LEVOTHYROXINE SODIUM [Concomitant]
     Active Substance: LEVOTHYROXINE SODIUM
  28. IMODIUM A-D [Concomitant]
     Active Substance: LOPERAMIDE HYDROCHLORIDE
  29. FULPHILA [Concomitant]
     Active Substance: PEGFILGRASTIM-JMDB

REACTIONS (3)
  - Diarrhoea [Unknown]
  - Candida infection [Unknown]
  - Decreased appetite [Not Recovered/Not Resolved]

NARRATIVE: CASE EVENT DATE: 20220101
